FAERS Safety Report 5523486-8 (Version None)
Quarter: 2007Q4

REPORT INFORMATION
  Report Type: 
  Country: None (occurrence: None)
  Receive Date: 20071121
  Receipt Date: 20071119
  Transmission Date: 20080405
  Serious: Yes (Death, Other)
  Sender: FDA-Public Use
  Company Number: IT-BRISTOL-MYERS SQUIBB COMPANY-13987409

PATIENT
  Age: 66 Year
  Sex: Male

DRUGS (5)
  1. IFOSFAMIDE [Suspect]
     Indication: SMALL CELL LUNG CANCER STAGE UNSPECIFIED
     Dosage: DOSAGE FORM=2.5G/M2 VIA 17-HR CONTINUOUS INFUSION.
     Route: 042
  2. CARBOPLATIN [Suspect]
     Indication: SMALL CELL LUNG CANCER STAGE UNSPECIFIED
  3. ETOPOSIDE [Suspect]
     Indication: SMALL CELL LUNG CANCER STAGE UNSPECIFIED
  4. MESNA [Concomitant]
  5. HYDRATION [Concomitant]

REACTIONS (2)
  - ENCEPHALOPATHY [None]
  - RENAL IMPAIRMENT [None]
